FAERS Safety Report 5545162-8 (Version None)
Quarter: 2007Q4

REPORT INFORMATION
  Report Type: 
  Country: None (occurrence: None)
  Receive Date: 20071210
  Receipt Date: 20070123
  Transmission Date: 20080405
  Serious: No
  Sender: FDA-Public Use
  Company Number: US-AMGEN-KDL208164

PATIENT
  Sex: Female

DRUGS (1)
  1. ENBREL [Suspect]
     Indication: RHEUMATOID ARTHRITIS
     Route: 058
     Dates: start: 19990101

REACTIONS (9)
  - ASTHMA [None]
  - BLOOD PRESSURE INCREASED [None]
  - DISLOCATION OF VERTEBRA [None]
  - DIZZINESS [None]
  - FALL [None]
  - INJECTION SITE PAIN [None]
  - JOINT INJURY [None]
  - MEMORY IMPAIRMENT [None]
  - SKIN LACERATION [None]
